FAERS Safety Report 4498398-1 (Version None)
Quarter: 2004Q4

REPORT INFORMATION
  Report Type: 
  Country: None (occurrence: None)
  Receive Date: 20041105
  Receipt Date: 20041026
  Transmission Date: 20050328
  Serious: Yes (Disabling, Other)
  Sender: FDA-Public Use
  Company Number: 2004-10-2038

PATIENT
  Age: 61 Year
  Sex: 0

DRUGS (2)
  1. INTERFERON ALFA-2B INJECTABLE (LIKE INTRON A) [Suspect]
     Indication: MALIGNANT MELANOMA
     Dosage: SEE IMAGE
     Route: 042
  2. RADIATION THERAPY NO DOSE FORM [Suspect]
     Indication: MALIGNANT MELANOMA
     Dosage: 2 GY/DOSE X-RAY THERAPY 25 DOSE (S)

REACTIONS (6)
  - ERYTHEMA [None]
  - FIBROSIS [None]
  - LYMPHOEDEMA [None]
  - PERIARTHRITIS [None]
  - RADIATION INJURY [None]
  - SKIN DESQUAMATION [None]
